FAERS Safety Report 6533645-3 (Version None)
Quarter: 2010Q1

REPORT INFORMATION
  Report Type: 
  Country: None (occurrence: None)
  Receive Date: 20100108
  Receipt Date: 20100108
  Transmission Date: 20100710
  Serious: Yes (Hospitalization)
  Sender: FDA-Public Use
  Company Number: None

PATIENT
  Age: 41 Year
  Sex: Male
  Weight: 87.5 kg

DRUGS (1)
  1. DICLOFENAC SODIUM [Suspect]
     Indication: PAIN
     Dosage: 75 MG TID PO
     Route: 048
     Dates: start: 20081009, end: 20090807

REACTIONS (7)
  - ALCOHOL USE [None]
  - COLITIS [None]
  - CROHN'S DISEASE [None]
  - GASTRIC HAEMORRHAGE [None]
  - GASTROINTESTINAL HAEMORRHAGE [None]
  - ILEAL ULCER [None]
  - LOSS OF EMPLOYMENT [None]
